FAERS Safety Report 10917699 (Version 2)
Quarter: 2015Q2

REPORT INFORMATION
  Report Type: Report from Study
  Country: JP (occurrence: JP)
  Receive Date: 20150316
  Receipt Date: 20150417
  Transmission Date: 20150821
  Serious: Yes (Hospitalization)
  Sender: FDA-Public Use
  Company Number: JP-EISAI MEDICAL RESEARCH-E2007-01450-CLI-JP

PATIENT
  Age: 46 Year
  Sex: Male
  Weight: 63 kg

DRUGS (17)
  1. TOPINA [Concomitant]
     Active Substance: TOPIRAMATE
     Indication: IDIOPATHIC GENERALISED EPILEPSY
     Route: 048
     Dates: start: 20130823
  2. PASTELLHAP [Concomitant]
     Indication: BACK PAIN
     Route: 065
     Dates: start: 20060118
  3. PERAMPANEL [Suspect]
     Active Substance: PERAMPANEL
     Route: 048
     Dates: start: 20141114, end: 20150309
  4. BENZALIN [Concomitant]
     Active Substance: NITRAZEPAM
     Indication: INSOMNIA
     Route: 048
     Dates: start: 20100604
  5. GABAPEN [Concomitant]
     Active Substance: GABAPENTIN
     Indication: IDIOPATHIC GENERALISED EPILEPSY
     Route: 048
     Dates: start: 20130823
  6. PERAMPANEL [Suspect]
     Active Substance: PERAMPANEL
     Indication: GENERALISED TONIC-CLONIC SEIZURE
     Dosage: PLACEBO
     Route: 048
     Dates: start: 20131120, end: 201411
  7. NEXIUM [Concomitant]
     Active Substance: ESOMEPRAZOLE MAGNESIUM
     Indication: CHRONIC GASTRITIS
     Route: 048
     Dates: start: 20131107
  8. ESTAZOLAM. [Concomitant]
     Active Substance: ESTAZOLAM
  9. CALONAL [Concomitant]
     Active Substance: ACETAMINOPHEN
     Indication: HEADACHE
     Route: 048
     Dates: start: 20081217
  10. BUSCOPAN [Concomitant]
     Active Substance: BUTYLSCOPOLAMINE BROMIDE
  11. PERAMPANEL [Suspect]
     Active Substance: PERAMPANEL
     Dosage: PLACEBO
     Route: 048
     Dates: start: 20131206, end: 20140429
  12. PERAMPANEL [Suspect]
     Active Substance: PERAMPANEL
     Route: 048
     Dates: start: 20140430, end: 20141108
  13. DEPAKENE [Concomitant]
     Active Substance: VALPROIC ACID
     Indication: IDIOPATHIC GENERALISED EPILEPSY
     Route: 048
     Dates: start: 20120523
  14. SKYRON [Concomitant]
     Indication: RHINITIS ALLERGIC
     Route: 045
     Dates: start: 20130413
  15. ZOPICLONE [Concomitant]
     Active Substance: ZOPICLONE
  16. MUCOSTA [Concomitant]
     Active Substance: REBAMIPIDE
     Indication: CHRONIC GASTRITIS
     Route: 048
     Dates: start: 20080911
  17. ZOPICOOL [Concomitant]
     Active Substance: ZOPICLONE
     Indication: INSOMNIA
     Route: 048
     Dates: start: 20061122

REACTIONS (2)
  - Dehydration [Not Recovered/Not Resolved]
  - Nausea [Recovered/Resolved]

NARRATIVE: CASE EVENT DATE: 20131129
